FAERS Safety Report 5762827-3 (Version None)
Quarter: 2008Q2

REPORT INFORMATION
  Report Type: 
  Country: None (occurrence: None)
  Receive Date: 20080609
  Receipt Date: 20080604
  Transmission Date: 20081010
  Serious: Yes (Other)
  Sender: FDA-Public Use
  Company Number: US-BRISTOL-MYERS SQUIBB COMPANY-14219869

PATIENT
  Age: 27 Year
  Sex: Male

DRUGS (1)
  1. HYDROXYUREA [Suspect]

REACTIONS (1)
  - AZOOSPERMIA [None]
